FAERS Safety Report 16377794 (Version 1)
Quarter: 2019Q2

REPORT INFORMATION
  Report Type: Spontaneous
  Country: IT (occurrence: IT)
  Receive Date: 20190531
  Receipt Date: 20190531
  Transmission Date: 20190711
  Serious: Yes (Other)
  Sender: FDA-Public Use
  Company Number: IT-MYLANLABS-2019M1051126

PATIENT
  Age: 50 Year
  Sex: Female

DRUGS (1)
  1. CAPECITABINE. [Suspect]
     Active Substance: CAPECITABINE
     Indication: GASTRIC CANCER
     Dosage: 1250 MILLIGRAM/SQ. METER
     Route: 065

REACTIONS (2)
  - Leukoencephalopathy [Recovering/Resolving]
  - Mutism [Recovering/Resolving]
